FAERS Safety Report 5017779-0 (Version None)
Quarter: 2006Q2

REPORT INFORMATION
  Report Type: 
  Country: None (occurrence: None)
  Receive Date: 20060605
  Receipt Date: 20060529
  Transmission Date: 20061013
  Serious: Yes (Disabling)
  Sender: FDA-Public Use
  Company Number: FR-JNJFOC-20060505981

PATIENT
  Age: 75 Year
  Sex: Male

DRUGS (2)
  1. TAVANIC [Suspect]
     Indication: DRUG USE FOR UNKNOWN INDICATION
     Route: 048
     Dates: start: 20030301, end: 20030301
  2. CORTICOSTEROIDS [Concomitant]
     Indication: BRONCHITIS CHRONIC
     Route: 065

REACTIONS (2)
  - MYALGIA [None]
  - VISUAL ACUITY REDUCED [None]
